FAERS Safety Report 7818374 (Version 2)
Quarter: 2012Q4

REPORT INFORMATION
  Report Type: 
  Country: US (occurrence: US)
  Receive Date: 20110218
  Receipt Date: 20120921
  Transmission Date: 20130627
  Serious: Yes (Death)
  Sender: FDA-Public Use
  Company Number: US-MYLANLABS-2011S1002673

PATIENT
  Age: 55 Year
  Sex: Female
  Weight: 76.2 kg

DRUGS (22)
  1. FENTANYL TRANSDERMAL SYSTEM [Suspect]
     Indication: PAIN
     Dosage: q3d
     Route: 062
     Dates: start: 200902, end: 20090216
  2. ABILIFY [Suspect]
     Dates: end: 20090216
  3. DIPHENHYDRAMINE [Suspect]
     Dates: end: 20090216
  4. PROPOXYPHENE NAPSYLATE AND ACETAMINOPHEN [Suspect]
     Dates: end: 20090216
  5. EFFEXOR XR [Suspect]
     Dates: end: 20090216
  6. TEGRETOL XR [Suspect]
     Dates: end: 20090216
  7. HYDROCORTISONE [Concomitant]
  8. TRAZODONE [Concomitant]
  9. HYDROCODONE/APAP [Concomitant]
     Route: 048
  10. DICLOFENAC SODIUM [Concomitant]
     Route: 048
  11. SIMVASTATIN [Concomitant]
     Indication: HYPERLIPIDAEMIA
     Route: 048
  12. AVAPRO [Concomitant]
     Indication: BLOOD PRESSURE
     Route: 048
  13. ALBUTEROL SULFATE [Concomitant]
     Dosage: For cough/wheezing
     Route: 055
  14. IPRATROPIUM BROMIDE [Concomitant]
     Dosage: For cough/wheezing
     Route: 055
  15. ADVAIR [Concomitant]
     Route: 055
  16. SPIRIVA [Concomitant]
     Indication: CHRONIC OBSTRUCTIVE PULMONARY DISEASE
     Route: 055
  17. NASONEX [Concomitant]
     Route: 055
  18. SUCRALFATE [Concomitant]
     Route: 048
  19. PROMETHAZINE [Concomitant]
     Dosage: Nausea or vomiting
  20. CLONAZEPAM [Concomitant]
  21. CYCLOBENZAPRINE [Concomitant]
  22. PROAIR /00139502/ [Concomitant]

REACTIONS (2)
  - Toxicity to various agents [Fatal]
  - Overdose [Fatal]
